FAERS Safety Report 11217654 (Version 1)
Quarter: 2015Q2

REPORT INFORMATION
  Report Type: Spontaneous
  Country: US (occurrence: None)
  Receive Date: 20150624
  Receipt Date: 20150624
  Transmission Date: 20150821
  Serious: No
  Sender: FDA-Public Use
  Company Number: None

PATIENT
  Age: 65 Year

DRUGS (27)
  1. LORAZEPAM. [Concomitant]
     Active Substance: LORAZEPAM
  2. MULTI [Concomitant]
  3. VIGAMOX [Concomitant]
     Active Substance: MOXIFLOXACIN HYDROCHLORIDE
  4. ESTRADIOL. [Concomitant]
     Active Substance: ESTRADIOL
  5. FENOFIBRATE. [Concomitant]
     Active Substance: FENOFIBRATE
  6. GILENYA [Concomitant]
     Active Substance: FINGOLIMOD HYDROCHLORIDE
  7. LUTEN [Concomitant]
  8. OMEPRAZOLE. [Concomitant]
     Active Substance: OMEPRAZOLE
  9. CYCLOBENZAPR [Concomitant]
  10. DEXILANT [Concomitant]
     Active Substance: DEXLANSOPRAZOLE
  11. BENICAR [Concomitant]
     Active Substance: OLMESARTAN MEDOXOMIL
  12. CALCIUM [Concomitant]
     Active Substance: CALCIUM
  13. LEVOTHYROXIN [Concomitant]
     Active Substance: LEVOTHYROXINE
  14. LOSARTAN POT [Concomitant]
  15. PREMARIN [Concomitant]
     Active Substance: ESTROGENS, CONJUGATED
  16. SPIRONOLACT [Concomitant]
  17. TRAMADOL HCL [Concomitant]
     Active Substance: TRAMADOL HYDROCHLORIDE
  18. GILENYA [Suspect]
     Active Substance: FINGOLIMOD HYDROCHLORIDE
     Indication: MULTIPLE SCLEROSIS
     Route: 048
  19. CLOTRIMAZOLE. [Concomitant]
     Active Substance: CLOTRIMAZOLE
  20. CLARTIN [Concomitant]
  21. COPAXONE [Concomitant]
     Active Substance: GLATIRAMER ACETATE
  22. KETOROLAC SOL [Concomitant]
  23. LANSOPRAZOLE. [Concomitant]
     Active Substance: LANSOPRAZOLE
  24. PREDNISONE SOL [Concomitant]
  25. TYENOL [Concomitant]
  26. VISCOL [Concomitant]
  27. FLUCONAZOLE. [Concomitant]
     Active Substance: FLUCONAZOLE

REACTIONS (1)
  - Herpes zoster [None]

NARRATIVE: CASE EVENT DATE: 20150620
